FAERS Safety Report 14184498 (Version 1)
Quarter: 2017Q4

REPORT INFORMATION
  Report Type: Spontaneous
  Country: CH (occurrence: CH)
  Receive Date: 20171113
  Receipt Date: 20171113
  Transmission Date: 20180321
  Serious: Yes (Hospitalization, Other)
  Sender: FDA-Public Use
  Company Number: CH-ALLERGAN-1764810US

PATIENT
  Age: 1 Day
  Sex: Male
  Weight: 3.55 kg

DRUGS (2)
  1. TEMESTA / LORAZEPAM [Suspect]
     Active Substance: LORAZEPAM
     Indication: MATERNAL EXPOSURE TIMING UNSPECIFIED
     Dosage: 1 MG IF NECESSARY UP TO 3 TIMES PER DAY.
     Route: 064
     Dates: start: 201606
  2. ESCITALOPRAM OXALATE - BP [Suspect]
     Active Substance: ESCITALOPRAM OXALATE
     Indication: MATERNAL EXPOSURE TIMING UNSPECIFIED
     Dosage: 10 MG, QD
     Route: 064
     Dates: start: 201606

REACTIONS (4)
  - Transient tachypnoea of the newborn [Unknown]
  - Sepsis neonatal [Unknown]
  - Neonatal behavioural syndrome [Unknown]
  - Hypoglycaemia neonatal [Unknown]

NARRATIVE: CASE EVENT DATE: 20170615
